FAERS Safety Report 24904519 (Version 1)
Quarter: 2025Q1

REPORT INFORMATION
  Report Type: Spontaneous
  Country: CN (occurrence: CN)
  Receive Date: 20250130
  Receipt Date: 20250130
  Transmission Date: 20250409
  Serious: Yes (Hospitalization)
  Sender: ROCHE
  Company Number: CN-CHEPLA-2025000857

PATIENT
  Age: 52 Year
  Sex: Female
  Weight: 56.5 kg

DRUGS (2)
  1. BEVACIZUMAB [Suspect]
     Active Substance: BEVACIZUMAB
     Indication: Rectal cancer
     Dosage: UNK;APPROVAL NO. GYZZ SJ20170035
     Route: 040
     Dates: start: 20240618, end: 20241209
  2. XELODA [Suspect]
     Active Substance: CAPECITABINE
     Indication: Rectal cancer
     Dosage: UNK/BID D1-D14, Q3W;APPROVAL NO. GYZZ H20073024
     Route: 048
     Dates: start: 20240618, end: 20241211

REACTIONS (1)
  - Drug-induced liver injury [Recovered/Resolved]

NARRATIVE: CASE EVENT DATE: 20241009
